FAERS Safety Report 14256522 (Version 2)
Quarter: 2018Q1

REPORT INFORMATION
  Report Type: Spontaneous
  Country: US (occurrence: US)
  Receive Date: 20171206
  Receipt Date: 20180207
  Transmission Date: 20180508
  Serious: No
  Sender: FDA-Public Use
  Company Number: US-PFIZER INC-2017522510

PATIENT
  Age: 49 Year
  Sex: Female

DRUGS (1)
  1. NEURONTIN [Suspect]
     Active Substance: GABAPENTIN
     Indication: SPINAL PAIN
     Dosage: 800 MG, 4X/DAY
     Dates: start: 2004

REACTIONS (1)
  - Drug ineffective for unapproved indication [Recovered/Resolved]
